FAERS Safety Report 6623139-9 (Version None)
Quarter: 2010Q1

REPORT INFORMATION
  Report Type: 
  Country: None (occurrence: None)
  Receive Date: 20100310
  Receipt Date: 20091215
  Transmission Date: 20100710
  Serious: No
  Sender: FDA-Public Use
  Company Number: US-BIOGENIDEC-2009BI040987

PATIENT
  Age: 52 Year
  Sex: Female

DRUGS (3)
  1. AVONEX [Suspect]
     Indication: MULTIPLE SCLEROSIS
     Route: 030
     Dates: start: 20091114
  2. PILOCARPINE HYDROCHLORIDE [Concomitant]
     Indication: DRY MOUTH
  3. PERCOCET [Concomitant]
     Indication: HEADACHE
     Route: 048

REACTIONS (6)
  - BURSITIS [None]
  - FATIGUE [None]
  - HEADACHE [None]
  - INJECTION SITE PAIN [None]
  - SJOGREN'S SYNDROME [None]
  - SLEEP DISORDER [None]
